FAERS Safety Report 8155713-5 (Version None)
Quarter: 2012Q1

REPORT INFORMATION
  Report Type: 
  Country: None (occurrence: None)
  Receive Date: 20120222
  Receipt Date: 20120215
  Transmission Date: 20120608
  Serious: Yes (Life-Threatening, Other)
  Sender: FDA-Public Use
  Company Number: CA-BAYER-2012-015280

PATIENT
  Age: 75 Year
  Sex: Female
  Weight: 59.864 kg

DRUGS (10)
  1. ALTACE [Suspect]
     Dosage: 10 MG, UNK
  2. TRAZODONE HYDROCHLORIDE [Concomitant]
  3. ACTIVANT [Concomitant]
  4. RAMIPRIL [Concomitant]
  5. NORVASC [Suspect]
     Dosage: 5 MG, UNK
  6. AMLODIPINE [Concomitant]
  7. RAMIPRIL [Concomitant]
  8. AVELOX [Concomitant]
  9. OXAZEPAM [Concomitant]
  10. AVELOX [Suspect]
     Dosage: 400 MG, UNK

REACTIONS (4)
  - ASTHENIA [None]
  - HEADACHE [None]
  - COUGH [None]
  - EAR PAIN [None]
